FAERS Safety Report 15625909 (Version 1)
Quarter: 2018Q4

REPORT INFORMATION
  Report Type: Spontaneous
  Country: US (occurrence: US)
  Receive Date: 20181112
  Receipt Date: 20181112
  Transmission Date: 20190205
  Serious: No
  Sender: FDA-Public Use
  Company Number: None

PATIENT
  Age: 69 Year
  Weight: 65.77 kg

DRUGS (1)
  1. RAYALDEE [Suspect]
     Active Substance: CALCIFEDIOL
     Indication: HYPERPARATHYROIDISM
     Route: 048
     Dates: start: 20181016, end: 20181023

REACTIONS (3)
  - Renal failure [None]
  - Dialysis [None]
  - Hypersensitivity [None]

NARRATIVE: CASE EVENT DATE: 20181023
